FAERS Safety Report 7444520-4 (Version None)
Quarter: 2011Q2

REPORT INFORMATION
  Report Type: 
  Country: None (occurrence: None)
  Receive Date: 20110429
  Receipt Date: 20110411
  Transmission Date: 20111010
  Serious: No
  Sender: FDA-Public Use
  Company Number: US-B.I. PHARMACEUTICALS,INC./RIDGEFIELD-2011-BP-10425BP

PATIENT
  Age: 70 Year
  Sex: Male

DRUGS (4)
  1. HYDROCHLOROTHIAZIDE [Concomitant]
     Indication: HYPERTENSION
  2. AGGRENOX [Suspect]
     Route: 048
  3. AGGRENOX [Suspect]
     Indication: TRANSIENT ISCHAEMIC ATTACK
     Route: 048
     Dates: start: 20101101
  4. OMEPRAZOLE [Concomitant]
     Indication: DYSPEPSIA

REACTIONS (4)
  - NAUSEA [None]
  - CONSTIPATION [None]
  - BOWEL MOVEMENT IRREGULARITY [None]
  - HEADACHE [None]
